FAERS Safety Report 7324607-7 (Version None)
Quarter: 2011Q1

REPORT INFORMATION
  Report Type: 
  Country: None (occurrence: None)
  Receive Date: 20110209
  Receipt Date: 20101018
  Transmission Date: 20110831
  Serious: No
  Sender: FDA-Public Use
  Company Number: 2010000055

PATIENT
  Sex: Female

DRUGS (1)
  1. ULESFIA [Suspect]
     Indication: LICE INFESTATION
     Dosage: HALF BOTTLE, ONCE, TOPICAL
     Route: 061
     Dates: start: 20101016, end: 20101016

REACTIONS (2)
  - TACHYCARDIA [None]
  - MEDICATION ERROR [None]
